FAERS Safety Report 6483842-0 (Version None)
Quarter: 2009Q4

REPORT INFORMATION
  Report Type: 
  Country: None (occurrence: None)
  Receive Date: 20091209
  Receipt Date: 20091130
  Transmission Date: 20100525
  Serious: Yes (Hospitalization)
  Sender: FDA-Public Use
  Company Number: DE-ELI_LILLY_AND_COMPANY-DE200912000343

PATIENT
  Sex: Female
  Weight: 112 kg

DRUGS (9)
  1. GEMCITABINE HCL [Suspect]
     Indication: BILE DUCT CANCER
     Dosage: 750 MG/M2, WEEKLY (1/W)
     Route: 042
     Dates: start: 20090123
  2. PLACEBO [Suspect]
     Indication: BILE DUCT CANCER
     Dosage: 4 D/F, DAILY (1/D)
     Route: 048
     Dates: start: 20090123
  3. CIPRALEX [Concomitant]
     Indication: DEPRESSION
     Dosage: 40 MG, DAILY (1/D)
     Route: 048
  4. INNOHEP [Concomitant]
     Indication: THROMBOSIS PROPHYLAXIS
     Dosage: 1 ML, DAILY (1/D)
     Route: 058
  5. LORAZEPAM [Concomitant]
     Indication: ANXIETY
     Dosage: 1 MG, DAILY (1/D)
     Route: 048
  6. L-THYROXIN [Concomitant]
     Indication: HYPOTHYROIDISM
     Dosage: 75 UG, DAILY (1/D)
     Route: 048
  7. PANTOZOL [Concomitant]
     Dosage: 40 MG, DAILY (1/D)
     Route: 048
  8. TRIMIPRAMINE [Concomitant]
     Indication: DEPRESSION
     Dosage: 100 MG, DAILY (1/D)
     Route: 048
  9. ZOPICLON [Concomitant]
     Indication: SLEEP DISORDER
     Dosage: 7.5 MG, DAILY (1/D)
     Route: 048

REACTIONS (1)
  - PULMONARY EMBOLISM [None]
